FAERS Safety Report 13899833 (Version 1)
Quarter: 2017Q3

REPORT INFORMATION
  Report Type: Report from Study
  Country: CO (occurrence: CO)
  Receive Date: 20170823
  Receipt Date: 20170823
  Transmission Date: 20171127
  Serious: Yes (Other)
  Sender: FDA-Public Use
  Company Number: CO-REGENERON PHARMACEUTICALS, INC.-2017-20567

PATIENT

DRUGS (3)
  1. EYLEA [Suspect]
     Active Substance: AFLIBERCEPT
     Indication: AGE-RELATED MACULAR DEGENERATION
     Dosage: 2.0 MG, 1 MONTHLY APPLICATION FOR 3 MONTHS
     Route: 031
     Dates: start: 20140718
  2. EYLEA [Suspect]
     Active Substance: AFLIBERCEPT
     Dosage: 2.0 MG, EVERY 2 MONTHS. TOTAL NUMBER OF DOSES RECEIVED NOT PROVIDED.
     Route: 031
     Dates: start: 2014
  3. EYLEA [Suspect]
     Active Substance: AFLIBERCEPT
     Dosage: LAST DOSE PRIOR TO EVENT ONSET.
     Route: 031
     Dates: start: 20170721, end: 20170721

REACTIONS (1)
  - Blindness transient [Recovered/Resolved]

NARRATIVE: CASE EVENT DATE: 20170721
